FAERS Safety Report 16454674 (Version 1)
Quarter: 2019Q2

REPORT INFORMATION
  Report Type: Spontaneous
  Country: US (occurrence: US)
  Receive Date: 20190619
  Receipt Date: 20190619
  Transmission Date: 20190711
  Serious: No
  Sender: FDA-Public Use
  Company Number: US-ROCHE-2145116

PATIENT
  Age: 64 Year
  Sex: Male
  Weight: 72.64 kg

DRUGS (1)
  1. ACTEMRA [Suspect]
     Active Substance: TOCILIZUMAB
     Indication: RHEUMATOID ARTHRITIS
     Dosage: ONGOING: YES
     Route: 058
     Dates: start: 201805

REACTIONS (3)
  - Wrong technique in product usage process [Unknown]
  - Exposure via skin contact [Unknown]
  - Product dose omission [Unknown]

NARRATIVE: CASE EVENT DATE: 20180620
